FAERS Safety Report 17686106 (Version 1)
Quarter: 2020Q3

REPORT INFORMATION
  Report Type: Report from Study
  Country: BR (occurrence: BR)
  Receive Date: 20200420
  Receipt Date: 20200420
  Transmission Date: 20201105
  Serious: Yes (Hospitalization)
  Sender: FDA-Public Use
  Company Number: PHHY2019BR001842

PATIENT
  Age: 81 Year
  Sex: Female
  Weight: 60 kg

DRUGS (8)
  1. XOLAIR [Suspect]
     Active Substance: OMALIZUMAB
     Dosage: UNK UNK, QMO (EVERY 4 WEEK)
     Route: 065
     Dates: start: 20180503
  2. XOLAIR [Suspect]
     Active Substance: OMALIZUMAB
     Dosage: UNK UNK, QMO
     Route: 065
     Dates: start: 20190424
  3. CIMECORT [Concomitant]
     Active Substance: BETAMETHASONE\KETOCONAZOLE\NEOMYCIN
     Indication: DYSPNOEA
     Dosage: UNK (2 YEARS)
     Route: 065
  4. DUOVENT [Concomitant]
     Active Substance: FENOTEROL HYDROBROMIDE
     Indication: DYSPNOEA
     Dosage: UNK (MANY YEARS, BEFORE XOLAIR)
     Route: 065
  5. XOLAIR [Suspect]
     Active Substance: OMALIZUMAB
     Indication: ASTHMA
     Dosage: 450 MG, UNK
     Route: 058
     Dates: start: 201805
  6. SEEBRI BREEZHALER [Suspect]
     Active Substance: GLYCOPYRROLATE
     Indication: ASTHMA
     Dosage: 1 DF, QD (IN THE MORNING) (3 YEARS)
     Route: 055
  7. MIFLONIDE [Concomitant]
     Active Substance: BUDESONIDE
     Indication: DYSPNOEA
     Dosage: UNK (2 YEARS)
     Route: 065
  8. XOLAIR [Suspect]
     Active Substance: OMALIZUMAB
     Dosage: 450 MG, QMO
     Route: 058
     Dates: start: 20181216

REACTIONS (14)
  - Influenza [Recovered/Resolved]
  - Cough [Recovered/Resolved]
  - Injection site discolouration [Recovering/Resolving]
  - Concomitant disease aggravated [Recovering/Resolving]
  - Dizziness [Recovered/Resolved]
  - Soft tissue disorder [Recovered/Resolved]
  - Pain [Recovered/Resolved]
  - Lower respiratory tract infection [Recovered/Resolved]
  - Asthenia [Recovered/Resolved]
  - Product use in unapproved indication [Unknown]
  - Gait disturbance [Recovered/Resolved]
  - Injection site bruising [Recovered/Resolved]
  - Dyspnoea [Recovering/Resolving]
  - Wrong technique in product usage process [Recovering/Resolving]

NARRATIVE: CASE EVENT DATE: 20181216
